FAERS Safety Report 8974105 (Version 3)
Quarter: 2013Q3

REPORT INFORMATION
  Report Type: Spontaneous
  Country: DE (occurrence: None)
  Receive Date: 20121211
  Receipt Date: 20130822
  Transmission Date: 20140515
  Serious: No
  Sender: FDA-Public Use
  Company Number: 1212DEU001519

PATIENT
  Sex: Female

DRUGS (1)
  1. KEIMAX [Suspect]
     Route: 048
     Dates: start: 20121130, end: 20121204

REACTIONS (2)
  - Pregnancy [None]
  - Maternal exposure during pregnancy [None]
